FAERS Safety Report 16827602 (Version 1)
Quarter: 2019Q3

REPORT INFORMATION
  Report Type: Spontaneous
  Country: US (occurrence: US)
  Receive Date: 20190919
  Receipt Date: 20190919
  Transmission Date: 20191005
  Serious: No
  Sender: FDA-Public Use
  Company Number: US-PFIZER INC-2017090430

PATIENT
  Age: 81 Year
  Sex: Female

DRUGS (33)
  1. BUMETANIDE. [Concomitant]
     Active Substance: BUMETANIDE
     Dosage: 1 MG, DAILY
     Route: 048
     Dates: start: 20150622
  2. METOPROLOL TARTRATE. [Concomitant]
     Active Substance: METOPROLOL TARTRATE
     Dosage: 50 MG, DAILY
     Route: 048
     Dates: start: 20150827
  3. ZOLPIDEM TARTRATE. [Concomitant]
     Active Substance: ZOLPIDEM TARTRATE
     Indication: INSOMNIA
     Dosage: 5 MG, AS NEEDED (1 EVERY HS AS NEEDED FOR SLEEP)
     Route: 048
     Dates: start: 20150104
  4. ALBUTEROL [SALBUTAMOL SULFATE] [Concomitant]
     Active Substance: ALBUTEROL SULFATE
     Dosage: UNK, AS NEEDED (NEB 4X/DAY, AND Q2 HRS AS NEEDED; MIX W/IPRATROPIUM)
     Dates: start: 20150303
  5. VITAMIN D2 [Concomitant]
     Active Substance: ERGOCALCIFEROL
     Dosage: 50000 IU, 2X/WEEK
     Route: 048
     Dates: start: 20120706
  6. OMEPRAZOLE. [Concomitant]
     Active Substance: OMEPRAZOLE
     Dosage: 40 MG, 1X/DAY 20-30 MINS BEFORE BREAKFAST
     Route: 048
     Dates: start: 20161212
  7. TRAMADOL [TRAMADOL HYDROCHLORIDE] [Concomitant]
     Active Substance: TRAMADOL HYDROCHLORIDE
     Indication: PAIN
     Dosage: 50 MG, AS NEEDED (1 EVERY 6 AS NEEDED)
     Route: 048
     Dates: start: 20160307
  8. TROLAMINE SALICYLATE. [Concomitant]
     Active Substance: TROLAMINE SALICYLATE
     Dosage: UNK, AS NEEDED (1 APPLICATION TOPICALLY TO AFFECTED AREA 4 TIMES PER DAY AS NEEDED)
     Route: 061
     Dates: start: 20160725
  9. PHENERGAN WITH DEXTROMETHORPHAN [Concomitant]
     Dosage: 15MG-6.25MG/5ML, 1 TEASPOON, 4X/DAY
     Dates: start: 20161017
  10. VOLTAREN [Concomitant]
     Active Substance: DICLOFENAC SODIUM
     Dosage: UNK, 4X/DAY(RUB INTO AFFECTED AREAS 4 TIMES A DAY)
     Route: 061
     Dates: start: 20160105
  11. IPRATROPIUM [Concomitant]
     Active Substance: IPRATROPIUM
     Dosage: UNK, (500MCG/2.5ML, NEB 4X/DAY + EVERY 2 HRS AS NEEDED MIX W/ALBUTEROL
     Dates: start: 20150303
  12. LACTOBACILLUS [Concomitant]
     Active Substance: LACTOBACILLUS ACIDOPHILUS
     Dosage: 1 DF, DAILY
     Route: 048
     Dates: start: 20160202
  13. LEVOTHYROXINE SODIUM. [Concomitant]
     Active Substance: LEVOTHYROXINE SODIUM
     Dosage: 50 UG, DAILY ON EMPTY STOMACH
     Route: 048
     Dates: start: 20161212
  14. SIMVASTATIN. [Concomitant]
     Active Substance: SIMVASTATIN
     Dosage: 40 MG, 1X/DAYAT BEDTIME
     Route: 048
     Dates: start: 20120625
  15. TRAZODONE [Concomitant]
     Active Substance: TRAZODONE HYDROCHLORIDE
     Indication: INSOMNIA
     Dosage: 50 MG, AS NEEDED (1-2 EVERY AT BED TIME AS NEEDED)
     Route: 048
     Dates: start: 20160105
  16. CITALOPRAM [CITALOPRAM HYDROBROMIDE] [Concomitant]
     Active Substance: CITALOPRAM HYDROBROMIDE
     Indication: DEPRESSION
     Dosage: 10 MG, DAILY
     Route: 048
     Dates: start: 20161212
  17. LEVEMIR [Concomitant]
     Active Substance: INSULIN DETEMIR
     Dosage: 35 IU, 1X/DAY BEFORE MEAL (HS)
     Route: 058
     Dates: start: 20150904
  18. TRAZODONE [Concomitant]
     Active Substance: TRAZODONE HYDROCHLORIDE
     Dosage: 150 MG, 1X/DAY (1-2 AT BED TIME)
     Route: 048
     Dates: start: 20150817
  19. SYMBICORT [Concomitant]
     Active Substance: BUDESONIDE\FORMOTEROL FUMARATE DIHYDRATE
     Dosage: UNK, 2X/DAY (160-4.5 MCG/ACT, 2 PUFFS BID)
     Dates: start: 20150205
  20. HUMALOG MIX [Concomitant]
     Active Substance: INSULIN LISPRO
     Dosage: 20 IU, 1X/DAY W/ BREAKFAST
     Route: 058
     Dates: start: 20150904
  21. PROMETHAZINE DM [Concomitant]
     Active Substance: DEXTROMETHORPHAN HYDROBROMIDE\PROMETHAZINE HYDROCHLORIDE
     Indication: COUGH
     Dosage: 5 ML, 5 ML, 4X/DAY IF NEEDED (6.25-15MG/5ML
     Route: 048
  22. LYRICA [Suspect]
     Active Substance: PREGABALIN
     Dosage: 150 MG, DAILY (150MG CAPSULE, DAILY AT BEDTIME (HS))
     Route: 048
     Dates: start: 20160323
  23. CLONAZEPAM. [Concomitant]
     Active Substance: CLONAZEPAM
     Dosage: UNK
     Route: 048
  24. SOLARAZE [Concomitant]
     Active Substance: DICLOFENAC SODIUM
     Dosage: UNK (RUB  INTO AFFECTED AREAS OF PAINNIN HANDS 3-4X/-DAY)
     Route: 061
     Dates: start: 20120625
  25. PREDNISONE. [Concomitant]
     Active Substance: PREDNISONE
     Dosage: 1 DF, DAILY
     Route: 048
     Dates: start: 20150205
  26. AMOXICILLIN. [Concomitant]
     Active Substance: AMOXICILLIN
     Dosage: 250 MG, 3X/DAY(EVERY 8 HOURS FOR 7 DAYS)
     Route: 048
     Dates: start: 20160202
  27. HUMULIN NOS [Concomitant]
     Active Substance: INSULIN HUMAN
     Dosage: 20 IU, DAILYIN AM (70/30 KWIKPEN 100)
     Route: 058
     Dates: start: 20160105
  28. PREDNISONE. [Concomitant]
     Active Substance: PREDNISONE
     Dosage: 2 DF, DAILY X3
     Route: 048
     Dates: start: 20150205
  29. LYRICA [Suspect]
     Active Substance: PREGABALIN
     Dosage: 225 MG, DAILY (STRENGTH: 75MG, 1 IN AM AND 2 IN PM)
     Route: 048
  30. CELEBREX [Suspect]
     Active Substance: CELECOXIB
     Indication: ARTHRITIS
     Dosage: 200 MG, 2X/DAY (1DF STRENGTH: 200MG, BID)
     Route: 048
     Dates: start: 20170102
  31. FLECTOR [Concomitant]
     Active Substance: DICLOFENAC EPOLAMINE
     Indication: PAIN
     Dosage: 1 DF, 2X/DAY (1 1.3% TRANSDERMAL PATCH, 2X/DAY)
     Route: 062
     Dates: start: 20150904
  32. PREDNISONE. [Concomitant]
     Active Substance: PREDNISONE
     Dosage: 1 DF, DAILY X5 DAYS
     Route: 048
     Dates: start: 20150303
  33. PREDNISONE. [Concomitant]
     Active Substance: PREDNISONE
     Dosage: 0.5 DF, DAILY UNTIL DONE
     Route: 048
     Dates: start: 20150303

REACTIONS (1)
  - Headache [Unknown]
